FAERS Safety Report 5005264-1 (Version None)
Quarter: 2006Q2

REPORT INFORMATION
  Report Type: 
  Country: None (occurrence: None)
  Receive Date: 20060518
  Receipt Date: 20060508
  Transmission Date: 20061013
  Serious: Yes (Death, Hospitalization)
  Sender: FDA-Public Use
  Company Number: 1425762

PATIENT
  Age: 22 Year
  Sex: Male
  Weight: 56 kg

DRUGS (2)
  1. 506U78 [Suspect]
     Dosage: 1.5GM2 CYCLIC
     Route: 042
     Dates: start: 20060113, end: 20060117
  2. ANALGESIC [Concomitant]

REACTIONS (20)
  - ALANINE AMINOTRANSFERASE ABNORMAL [None]
  - ASPARTATE AMINOTRANSFERASE ABNORMAL [None]
  - BLOOD ALKALINE PHOSPHATASE ABNORMAL [None]
  - BLOOD CREATININE ABNORMAL [None]
  - BLOOD LACTATE DEHYDROGENASE INCREASED [None]
  - BLOOD UREA ABNORMAL [None]
  - COAGULOPATHY [None]
  - COGNITIVE DISORDER [None]
  - DISEASE PROGRESSION [None]
  - HYPERBILIRUBINAEMIA [None]
  - HYPOCAPNIA [None]
  - INSOMNIA [None]
  - MULTI-ORGAN FAILURE [None]
  - PERIPHERAL SENSORY NEUROPATHY [None]
  - PLEURAL EFFUSION [None]
  - PNEUMONIA [None]
  - RENAL FAILURE [None]
  - RESPIRATORY FAILURE [None]
  - SEPSIS [None]
  - SOMNOLENCE [None]
